FAERS Safety Report 6307715-9 (Version None)
Quarter: 2009Q3

REPORT INFORMATION
  Report Type: 
  Country: None (occurrence: None)
  Receive Date: 20090813
  Receipt Date: 20090723
  Transmission Date: 20100115
  Serious: Yes (Other)
  Sender: FDA-Public Use
  Company Number: PHHY2009MX30802

PATIENT
  Age: 86 Year
  Sex: Female

DRUGS (1)
  1. DIOVAN [Suspect]
     Indication: HYPERTENSION
     Dosage: 80MG QD
     Route: 048
     Dates: start: 20061201

REACTIONS (6)
  - ANXIETY [None]
  - FACIAL PALSY [None]
  - FALL [None]
  - FATIGUE [None]
  - HEADACHE [None]
  - UPPER LIMB FRACTURE [None]
